FAERS Safety Report 19256914 (Version 4)
Quarter: 2022Q3

REPORT INFORMATION
  Report Type: Report from Study
  Country: CL (occurrence: CL)
  Receive Date: 20210513
  Receipt Date: 20220926
  Transmission Date: 20221026
  Serious: No
  Sender: FDA-Public Use
  Company Number: CL-BRISTOL-MYERS SQUIBB COMPANY-BMS-2021-046759

PATIENT
  Age: 67 Year
  Sex: Male
  Weight: 66.5 kg

DRUGS (2)
  1. CABOZANTINIB [Suspect]
     Active Substance: CABOZANTINIB
     Indication: Renal cell carcinoma
     Dosage: THE MOST RECENT DOSE WAS RECEIVED ON 03-MAY-2021?STUDY THERAPY INTERRUPTED ON 04-MAY-2021
     Route: 048
     Dates: start: 20210325
  2. IPILIMUMAB [Suspect]
     Active Substance: IPILIMUMAB
     Indication: Renal cell carcinoma
     Dosage: THE MOST RECENT DOSE WAS RECEIVED ON 20-APR-2021?STUDY THERAPY DISCONTINUED ON 04-MAY-2021
     Route: 042
     Dates: start: 20210325, end: 20210504

REACTIONS (3)
  - Blood bilirubin increased [Recovered/Resolved]
  - Aspartate aminotransferase increased [Recovering/Resolving]
  - Alanine aminotransferase increased [Recovered/Resolved]

NARRATIVE: CASE EVENT DATE: 20210503
